FAERS Safety Report 7280221-3 (Version None)
Quarter: 2011Q1

REPORT INFORMATION
  Report Type: 
  Country: None (occurrence: None)
  Receive Date: 20110208
  Receipt Date: 20110131
  Transmission Date: 20110831
  Serious: Yes (Hospitalization, Other)
  Sender: FDA-Public Use
  Company Number: US-AMGEN-USASP2011006023

PATIENT
  Age: 69 Year
  Sex: Male

DRUGS (1)
  1. ENBREL [Suspect]
     Indication: RHEUMATOID ARTHRITIS
     Dosage: 50 MG, QWK
     Dates: end: 20101207

REACTIONS (9)
  - CARDIAC OPERATION [None]
  - CHRONIC OBSTRUCTIVE PULMONARY DISEASE [None]
  - DIABETES MELLITUS [None]
  - COLON CANCER [None]
  - GASTROOESOPHAGEAL REFLUX DISEASE [None]
  - PULMONARY OEDEMA [None]
  - HYPERTENSION [None]
  - RENAL FAILURE CHRONIC [None]
  - PARKINSON'S DISEASE [None]
